FAERS Safety Report 18057151 (Version 1)
Quarter: 2020Q3

REPORT INFORMATION
  Report Type: Spontaneous
  Country: JP (occurrence: JP)
  Receive Date: 20200723
  Receipt Date: 20200723
  Transmission Date: 20201103
  Serious: Yes (Hospitalization)
  Sender: FDA-Public Use
  Company Number: JP-BAUSCH-BL-2020-020345

PATIENT
  Age: 58 Year
  Sex: Female

DRUGS (7)
  1. SULPIRIDE [Suspect]
     Active Substance: SULPIRIDE
     Indication: PRODUCT USED FOR UNKNOWN INDICATION
     Route: 065
  2. PEGFILGRASTIM [Suspect]
     Active Substance: PEGFILGRASTIM
     Indication: BREAST CANCER STAGE III
     Route: 058
  3. FAMOTIDINE. [Suspect]
     Active Substance: FAMOTIDINE
     Indication: PRODUCT USED FOR UNKNOWN INDICATION
     Route: 065
  4. CYCLOPHOSPHAMIDE. [Suspect]
     Active Substance: CYCLOPHOSPHAMIDE
     Indication: BREAST CANCER STAGE III
     Dosage: DOSE?DENSE, 4 CYCLES EVERY 2 WEEKS, CYCLICAL, EC CHEMOTHERAPHY
     Route: 042
  5. EPIRUBICIN [Suspect]
     Active Substance: EPIRUBICIN
     Indication: BREAST CANCER STAGE III
     Dosage: DOSE?DENSE, 4 CYCLES EVERY 2 WEEKS, CYCLICAL, EC CHEMOTHERAPHY
     Route: 042
  6. ALPRAZOLAM. [Suspect]
     Active Substance: ALPRAZOLAM
     Indication: ANXIETY
     Route: 065
  7. TIZANIDINE. [Suspect]
     Active Substance: TIZANIDINE
     Indication: PRODUCT USED FOR UNKNOWN INDICATION
     Route: 065

REACTIONS (5)
  - Torsade de pointes [Recovering/Resolving]
  - Hypokalaemia [Recovered/Resolved]
  - Electrocardiogram QT prolonged [Recovering/Resolving]
  - Atrioventricular block complete [Recovering/Resolving]
  - Hypocalcaemia [Unknown]
